FAERS Safety Report 12891338 (Version 1)
Quarter: 2016Q4

REPORT INFORMATION
  Report Type: Spontaneous
  Country: US (occurrence: US)
  Receive Date: 20161028
  Receipt Date: 20161028
  Transmission Date: 20170207
  Serious: Yes (Other)
  Sender: FDA-Public Use
  Company Number: US-BEH-2016074568

PATIENT
  Age: 13 Year
  Sex: Male
  Weight: 36.28 kg

DRUGS (17)
  1. NORVASC [Concomitant]
     Active Substance: AMLODIPINE BESYLATE
  2. OMEPRAZOLE. [Concomitant]
     Active Substance: OMEPRAZOLE
  3. AMOXICILLIN. [Concomitant]
     Active Substance: AMOXICILLIN
  4. HIZENTRA [Suspect]
     Active Substance: HUMAN IMMUNOGLOBULIN G
     Dosage: 5 G, QW
     Route: 058
     Dates: start: 20090721
  5. EPIPEN [Concomitant]
     Active Substance: EPINEPHRINE
  6. HYDROXYZINE [Concomitant]
     Active Substance: HYDROXYZINE\HYDROXYZINE HYDROCHLORIDE
  7. LIDOCAINE/PRILOCAINE [Concomitant]
     Active Substance: LIDOCAINE\PRILOCAINE
  8. CLINDAMYCIN. [Concomitant]
     Active Substance: CLINDAMYCIN
  9. COLACE [Concomitant]
     Active Substance: DOCUSATE SODIUM
  10. DIPHENHYDRAMINE. [Concomitant]
     Active Substance: DIPHENHYDRAMINE
  11. HIZENTRA [Suspect]
     Active Substance: HUMAN IMMUNOGLOBULIN G
     Indication: IMMUNODEFICIENCY
     Dosage: 5 G, QW
     Route: 058
     Dates: start: 20090721
  12. CLONIDINE. [Concomitant]
     Active Substance: CLONIDINE
  13. OFLOXACIN. [Concomitant]
     Active Substance: OFLOXACIN
  14. CIPRODEX                           /00697202/ [Concomitant]
  15. TRILEPTAL [Concomitant]
     Active Substance: OXCARBAZEPINE
  16. ACETAMINOPHEN. [Concomitant]
     Active Substance: ACETAMINOPHEN
  17. ZANTAC [Concomitant]
     Active Substance: RANITIDINE HYDROCHLORIDE

REACTIONS (6)
  - Drooling [Unknown]
  - Flushing [Unknown]
  - Catatonia [Unknown]
  - Flushing [Unknown]
  - Catatonia [Unknown]
  - Drooling [Unknown]

NARRATIVE: CASE EVENT DATE: 20161009
